FAERS Safety Report 23779655 (Version 3)
Quarter: 2024Q3

REPORT INFORMATION
  Report Type: Spontaneous
  Country: US (occurrence: US)
  Receive Date: 20240424
  Receipt Date: 20240808
  Transmission Date: 20241016
  Serious: Yes (Hospitalization)
  Sender: SANOFI AVENTIS
  Company Number: US-SA-SAC20240423000948

PATIENT
  Sex: Female

DRUGS (37)
  1. DUPIXENT [Suspect]
     Active Substance: DUPILUMAB
     Indication: Asthma
     Dosage: 300 MG, QOW
     Route: 058
     Dates: start: 20220412
  2. ALBUTEROL [Concomitant]
     Active Substance: ALBUTEROL
  3. ALPRAZOLAM [Concomitant]
     Active Substance: ALPRAZOLAM
  4. ALPRAZOLAM [Concomitant]
     Active Substance: ALPRAZOLAM
  5. HYDROXYZINE [Concomitant]
     Active Substance: HYDROXYZINE HYDROCHLORIDE
  6. BACLOFEN [Concomitant]
     Active Substance: BACLOFEN
  7. BACLOFEN [Concomitant]
     Active Substance: BACLOFEN
  8. EZETIMIBE [Concomitant]
     Active Substance: EZETIMIBE
  9. EZETIMIBE [Concomitant]
     Active Substance: EZETIMIBE
  10. FLONASE [Concomitant]
     Active Substance: FLUTICASONE PROPIONATE
  11. FLOVENT [Interacting]
     Active Substance: FLUTICASONE PROPIONATE
  12. NUCYNTA [Concomitant]
     Active Substance: TAPENTADOL HYDROCHLORIDE
  13. NUCYNTA [Concomitant]
     Active Substance: TAPENTADOL HYDROCHLORIDE
  14. NYSTATIN [Concomitant]
     Active Substance: NYSTATIN
  15. NYSTATIN [Concomitant]
     Active Substance: NYSTATIN
  16. OMEPRAZOLE [Concomitant]
     Active Substance: OMEPRAZOLE
  17. OMEPRAZOLE [Concomitant]
     Active Substance: OMEPRAZOLE
  18. PREDNISONE [Concomitant]
     Active Substance: PREDNISONE
  19. PREDNISONE [Concomitant]
     Active Substance: PREDNISONE
  20. PROMETHAZINE [Concomitant]
     Active Substance: PROMETHAZINE HYDROCHLORIDE
  21. PROMETHAZINE [Concomitant]
     Active Substance: PROMETHAZINE HYDROCHLORIDE
  22. PROMETHAZINE [Concomitant]
     Active Substance: PROMETHAZINE HYDROCHLORIDE
  23. REPATHA [Concomitant]
     Active Substance: EVOLOCUMAB
  24. SYMBICORT [Concomitant]
     Active Substance: BUDESONIDE\FORMOTEROL FUMARATE DIHYDRATE
  25. SYMBICORT [Concomitant]
     Active Substance: BUDESONIDE\FORMOTEROL FUMARATE DIHYDRATE
  26. SYMBICORT [Concomitant]
     Active Substance: BUDESONIDE\FORMOTEROL FUMARATE DIHYDRATE
  27. SYNTHROID [Concomitant]
     Active Substance: LEVOTHYROXINE SODIUM
  28. SYNTHROID [Concomitant]
     Active Substance: LEVOTHYROXINE SODIUM
  29. SAMBUCUS NIGRA [Concomitant]
     Active Substance: HOMEOPATHICS
  30. ZINC [Concomitant]
     Active Substance: ZINC
  31. CHLORIDE;CITRIC ACID;GLUCOSE;POTASSIUM;SODIUM [Concomitant]
  32. ALBUTEROL [Concomitant]
     Active Substance: ALBUTEROL
  33. VITAMIN D3 [Concomitant]
     Active Substance: CHOLECALCIFEROL
     Dosage: UNK
  34. VITAMIN D3 [Concomitant]
     Active Substance: CHOLECALCIFEROL
  35. FLOVENT [Concomitant]
     Active Substance: FLUTICASONE PROPIONATE
  36. REPATHA [Concomitant]
     Active Substance: EVOLOCUMAB
  37. POTASSIUM CHLORIDE [Concomitant]
     Active Substance: POTASSIUM CHLORIDE

REACTIONS (3)
  - Asthma [Not Recovered/Not Resolved]
  - Impaired quality of life [Not Recovered/Not Resolved]
  - Stomatitis [Unknown]
